FAERS Safety Report 4881831-0 (Version None)
Quarter: 2006Q1

REPORT INFORMATION
  Report Type: 
  Country: None (occurrence: None)
  Receive Date: 20060112
  Receipt Date: 20060112
  Transmission Date: 20060701
  Serious: No
  Sender: FDA-Public Use
  Company Number: None

PATIENT
  Sex: Male
  Weight: 84.369 kg

DRUGS (1)
  1. NEURONTIN [Suspect]
     Indication: CONVULSION
     Dosage: 300 MG PO TID
     Route: 048
     Dates: start: 20041124

REACTIONS (2)
  - CONDITION AGGRAVATED [None]
  - CONVULSION [None]
